FAERS Safety Report 9639456 (Version 2)
Quarter: 2013Q4

REPORT INFORMATION
  Report Type: Report from Study
  Country: FR (occurrence: FR)
  Receive Date: 20131022
  Receipt Date: 20131022
  Transmission Date: 20140711
  Serious: Yes (Hospitalization)
  Sender: FDA-Public Use
  Company Number: FR-ROCHE-639606

PATIENT
  Age: 51 Year
  Sex: Male

DRUGS (23)
  1. RITUXIMAB [Suspect]
     Indication: BURKITT^S LYMPHOMA
     Route: 042
     Dates: start: 20080226, end: 20080226
  2. RITUXIMAB [Suspect]
     Route: 042
     Dates: start: 20080303, end: 20080303
  3. RITUXIMAB [Suspect]
     Route: 042
     Dates: start: 20080314, end: 20080314
  4. RITUXIMAB [Suspect]
     Route: 042
     Dates: start: 20080320, end: 20080320
  5. METHOTREXATE [Suspect]
     Indication: BURKITT^S LYMPHOMA
     Route: 042
     Dates: start: 20080227, end: 20080227
  6. METHOTREXATE [Suspect]
     Route: 042
     Dates: start: 20080315, end: 20080315
  7. VINCRISTINE SULFATE [Suspect]
     Indication: BURKITT^S LYMPHOMA
     Route: 042
     Dates: start: 20080227, end: 20080227
  8. VINCRISTINE SULFATE [Suspect]
     Route: 042
     Dates: start: 20080315, end: 20080315
  9. VINCRISTINE SULFATE [Suspect]
     Route: 042
     Dates: start: 20080320, end: 20080320
  10. CYCLOPHOSPHAMIDE [Suspect]
     Indication: BURKITT^S LYMPHOMA
     Route: 042
     Dates: start: 20080228, end: 20080301
  11. CYCLOPHOSPHAMIDE [Suspect]
     Route: 042
     Dates: start: 20080316, end: 20080318
  12. CYTARABINE [Suspect]
     Indication: BURKITT^S LYMPHOMA
     Dosage: FIRST COURSE
     Route: 042
     Dates: start: 20080414, end: 20080418
  13. CYTARABINE [Suspect]
     Dosage: SECOND COURSE
     Route: 042
     Dates: start: 20080515, end: 20080519
  14. CYTARABINE [Suspect]
     Dosage: MAINTAINENCE THERAPY
     Route: 042
     Dates: start: 20080715, end: 20080719
  15. CYTARABINE [Suspect]
     Dosage: MAINTENANCE THERAPY : 4 TH CYCLE
     Route: 042
     Dates: start: 20080909, end: 20080913
  16. ETOPOSIDE [Suspect]
     Indication: BURKITT^S LYMPHOMA
     Dosage: FIRST COURSE
     Route: 042
     Dates: start: 20080415, end: 20080418
  17. ETOPOSIDE [Suspect]
     Dosage: SECOND COURSE
     Route: 042
     Dates: start: 20080516, end: 20080519
  18. ETOPOSIDE [Suspect]
     Dosage: MAINTENANCE CHEMOTHERAPY
     Route: 042
     Dates: start: 20080715, end: 20080717
  19. ETOPOSIDE [Suspect]
     Dosage: MAINTENANCE CHEMOTHERAPY (4TH CYCLE)
     Route: 042
     Dates: start: 20080909, end: 20080911
  20. PREDNISOLONE [Suspect]
     Indication: BURKITT^S LYMPHOMA
     Route: 042
     Dates: start: 20080227, end: 20080303
  21. PREDNISOLONE [Suspect]
     Route: 042
     Dates: start: 20080315, end: 20080319
  22. DOXORUBICIN [Suspect]
     Indication: BURKITT^S LYMPHOMA
     Route: 042
     Dates: start: 20080228, end: 20080228
  23. DOXORUBICIN [Suspect]
     Route: 042
     Dates: start: 20080316, end: 20080316

REACTIONS (5)
  - Febrile bone marrow aplasia [Unknown]
  - Staphylococcal sepsis [Recovered/Resolved]
  - Palmar-plantar erythrodysaesthesia syndrome [Recovered/Resolved]
  - Klebsiella sepsis [Recovered/Resolved]
  - Febrile bone marrow aplasia [Recovered/Resolved]
